FAERS Safety Report 8599550-6 (Version None)
Quarter: 2012Q3

REPORT INFORMATION
  Report Type: 
  Country: None (occurrence: None)
  Receive Date: 20120808
  Receipt Date: 20120808
  Transmission Date: 20120928
  Serious: No
  Sender: FDA-Public Use
  Company Number: None

PATIENT
  Age: 57 Year
  Sex: Female
  Weight: 52.3 kg

DRUGS (2)
  1. CIPROFLOXACIN HCL [Suspect]
     Indication: DIARRHOEA
     Dosage: 500 MG AS NEEDED MOUTH
     Route: 048
     Dates: start: 20070901
  2. LEVAQUIN [Suspect]
     Indication: BACTERIAL INFECTION
     Dosage: 500 MG. ONE DAILY MOUTH
     Route: 048
     Dates: start: 20081001

REACTIONS (3)
  - MUSCLE DISORDER [None]
  - MUSCLE SPASMS [None]
  - GAIT DISTURBANCE [None]
